FAERS Safety Report 7472818-2 (Version None)
Quarter: 2011Q2

REPORT INFORMATION
  Report Type: 
  Country: None (occurrence: None)
  Receive Date: 20110511
  Receipt Date: 20110503
  Transmission Date: 20111010
  Serious: Yes (Hospitalization)
  Sender: FDA-Public Use
  Company Number: KR-SANOFI-AVENTIS-2011SA027687

PATIENT
  Age: 52 Year
  Sex: Male
  Weight: 53.8 kg

DRUGS (3)
  1. JEVTANA KIT [Suspect]
     Indication: PROSTATE CANCER
     Route: 042
     Dates: start: 20110418, end: 20110418
  2. PANTOPRAZOLE [Concomitant]
     Route: 042
  3. PREDNISOLONE [Suspect]
     Indication: PROSTATE CANCER
     Route: 048

REACTIONS (1)
  - MALLORY-WEISS SYNDROME [None]
